FAERS Safety Report 5513361-7 (Version None)
Quarter: 2007Q4

REPORT INFORMATION
  Report Type: 
  Country: None (occurrence: None)
  Receive Date: 20071112
  Receipt Date: 20071105
  Transmission Date: 20080405
  Serious: Yes (Hospitalization, Other)
  Sender: FDA-Public Use
  Company Number: US-PFIZER INC-2006113159

PATIENT
  Sex: Female
  Weight: 117.9 kg

DRUGS (2)
  1. BEXTRA [Suspect]
     Indication: PAIN
     Route: 048
  2. VIOXX [Suspect]
     Indication: OSTEOARTHRITIS
     Route: 048
     Dates: start: 20020501, end: 20040930

REACTIONS (1)
  - TRANSIENT ISCHAEMIC ATTACK [None]
